FAERS Safety Report 24304391 (Version 1)
Quarter: 2024Q3

REPORT INFORMATION
  Report Type: Spontaneous
  Country: IT (occurrence: IT)
  Receive Date: 20240910
  Receipt Date: 20240910
  Transmission Date: 20241016
  Serious: Yes (Hospitalization, Other)
  Sender: APELLIS PHARMACEUTICALS
  Company Number: IT-BIOVITRUM-2024-IT-011621

PATIENT

DRUGS (1)
  1. PEGCETACOPLAN [Suspect]
     Active Substance: PEGCETACOPLAN
     Indication: Product used for unknown indication
     Dosage: INCREASE IN PEGCETACOPLAN DOSE BRINGING THE ADMINISTRATION TO ONE VIAL EVERY THREE DAYS
     Dates: start: 202306

REACTIONS (1)
  - Breakthrough haemolysis [Unknown]

NARRATIVE: CASE EVENT DATE: 20240830
